FAERS Safety Report 15455041 (Version 1)
Quarter: 2018Q3

REPORT INFORMATION
  Report Type: Spontaneous
  Country: US (occurrence: US)
  Receive Date: 20180925
  Receipt Date: 20180925
  Transmission Date: 20181010
  Serious: No
  Sender: FDA-Public Use
  Company Number: None

PATIENT
  Age: 32 Year
  Sex: Female

DRUGS (1)
  1. MAKENA [Suspect]
     Active Substance: HYDROXYPROGESTERONE CAPROATE
     Indication: DIARRHOEA INFECTIOUS
     Dosage: ?          OTHER FREQUENCY:ONCE WEEKLY;?
     Route: 030
     Dates: start: 20180611

REACTIONS (2)
  - Dizziness [None]
  - Headache [None]

NARRATIVE: CASE EVENT DATE: 20180710
